FAERS Safety Report 6647704-8 (Version None)
Quarter: 2010Q1

REPORT INFORMATION
  Report Type: 
  Country: None (occurrence: None)
  Receive Date: 20100323
  Receipt Date: 20100318
  Transmission Date: 20100710
  Serious: Yes (Other)
  Sender: FDA-Public Use
  Company Number: US-BRISTOL-MYERS SQUIBB COMPANY-15023906

PATIENT
  Age: 26 Year
  Sex: Female

DRUGS (2)
  1. ARIPIPRAZOLE [Suspect]
     Dosage: 2YRS
  2. ANTIDEPRESSANT NOS [Concomitant]
     Dosage: 2YRS

REACTIONS (1)
  - MACULOPATHY [None]
